FAERS Safety Report 9472488 (Version 3)
Quarter: 2014Q2

REPORT INFORMATION
  Report Type: Spontaneous
  Country: CN (occurrence: CN)
  Receive Date: 20130823
  Receipt Date: 20140515
  Transmission Date: 20141212
  Serious: Yes (Hospitalization)
  Sender: FDA-Public Use
  Company Number: PHHY2013CN090886

PATIENT
  Age: 73 Year
  Sex: Female

DRUGS (9)
  1. ACLASTA [Suspect]
     Indication: HUMERUS FRACTURE
     Dosage: 0.5 MG,
     Route: 042
     Dates: start: 20130815, end: 20130815
  2. NOVOLIN R [Concomitant]
     Indication: DIABETES MELLITUS
     Route: 058
  3. NIFEDIPINE [Concomitant]
     Indication: HYPERTENSION
     Route: 048
  4. METFORMIN [Concomitant]
     Indication: DIABETES MELLITUS
     Route: 048
  5. GLUTATHIONE SODIUM [Concomitant]
     Route: 048
  6. VITAMIN D//ERGOCALCIFEROL [Concomitant]
     Route: 048
  7. DIOSMIN [Concomitant]
     Route: 048
  8. TAMSULOSIN [Concomitant]
     Route: 048
  9. NA XIN TONG [Concomitant]
     Route: 048

REACTIONS (2)
  - Jaundice [Recovered/Resolved]
  - Cholelithiasis [Recovered/Resolved]
